FAERS Safety Report 9882895 (Version 2)
Quarter: 2014Q1

REPORT INFORMATION
  Report Type: Spontaneous
  Country: US (occurrence: US)
  Receive Date: 20140207
  Receipt Date: 20140207
  Transmission Date: 20141002
  Serious: No
  Sender: FDA-Public Use
  Company Number: US-ACORDA-ACO_38875_2013

PATIENT
  Age: 48 Year
  Sex: Female

DRUGS (6)
  1. AMPYRA [Suspect]
     Indication: SPASTIC DIPLEGIA
     Dosage: 10 MG, Q 12 HRS
     Route: 048
     Dates: start: 20130709
  2. BACLOFEN [Concomitant]
     Indication: MUSCLE SPASTICITY
     Dosage: 20 MG, TID
     Route: 048
  3. KEPPRA [Concomitant]
     Indication: EPILEPSY
     Dosage: 1500 MG, QHS
     Route: 048
  4. LYRICA [Concomitant]
     Indication: EPILEPSY
     Dosage: 25 MG, BID
     Route: 048
  5. LYRICA [Concomitant]
     Indication: FIBROMYALGIA
  6. TRAZODONE [Concomitant]
     Indication: INSOMNIA
     Dosage: 150 MG, QHS
     Route: 048

REACTIONS (1)
  - Insomnia [Unknown]
